FAERS Safety Report 10570064 (Version 1)
Quarter: 2014Q4

REPORT INFORMATION
  Report Type: Spontaneous
  Country: US (occurrence: None)
  Receive Date: 20141105
  Receipt Date: 20141105
  Transmission Date: 20150529
  Serious: Yes (Other)
  Sender: FDA-Public Use
  Company Number: 54973 AE # 1575

PATIENT
  Age: 2 Year
  Sex: Male

DRUGS (1)
  1. BABY TEETHING [Suspect]
     Active Substance: ARABICA COFFEE BEAN\ATROPA BELLADONNA\CALCIUM PHOSPHATE\CHAMOMILE
     Indication: TEETHING
     Dosage: 2-3 TABLETS BY MOUTH QID
     Route: 048

REACTIONS (2)
  - Vomiting [None]
  - Seizure [None]

NARRATIVE: CASE EVENT DATE: 20130129
